FAERS Safety Report 8128101-5 (Version None)
Quarter: 2012Q1

REPORT INFORMATION
  Report Type: 
  Country: None (occurrence: None)
  Receive Date: 20120210
  Receipt Date: 20120209
  Transmission Date: 20120608
  Serious: Yes (Death, Other)
  Sender: FDA-Public Use
  Company Number: BR-BAYER-2011-122952

PATIENT
  Age: 66 Year
  Sex: Male
  Weight: 70 kg

DRUGS (2)
  1. NEXAVAR [Suspect]
     Indication: HEPATIC NEOPLASM MALIGNANT
     Dosage: 400 MG, BID
     Route: 048
     Dates: start: 20111208
  2. NEXAVAR [Suspect]
     Dosage: UNK

REACTIONS (7)
  - ANAEMIA [None]
  - HAEMORRHAGIC ASCITES [None]
  - WEIGHT DECREASED [None]
  - SUDDEN DEATH [None]
  - RETCHING [None]
  - DECREASED APPETITE [None]
  - ASTHENIA [None]
